FAERS Safety Report 5107080-9 (Version None)
Quarter: 2006Q3

REPORT INFORMATION
  Report Type: 
  Country: None (occurrence: None)
  Receive Date: 20060913
  Receipt Date: 20060828
  Transmission Date: 20061208
  Serious: Yes (Other)
  Sender: FDA-Public Use
  Company Number: 2006001698

PATIENT
  Age: 77 Year
  Sex: Female

DRUGS (1)
  1. TARCEVA [Suspect]
     Indication: NON-SMALL CELL LUNG CANCER
     Dosage: SEE IMAGE
     Dates: start: 20050601

REACTIONS (7)
  - ALOPECIA [None]
  - CATARACT [None]
  - DIARRHOEA [None]
  - MADAROSIS [None]
  - RASH [None]
  - SKIN FISSURES [None]
  - STAPHYLOCOCCAL INFECTION [None]
